FAERS Safety Report 9196067 (Version 1)
Quarter: 2013Q1

REPORT INFORMATION
  Report Type: Report from Study
  Country: CA (occurrence: CA)
  Receive Date: 20130328
  Receipt Date: 20130328
  Transmission Date: 20140127
  Serious: Yes (Hospitalization)
  Sender: FDA-Public Use
  Company Number: CA-JNJFOC-20130311085

PATIENT
  Age: 58 Year
  Sex: Female
  Weight: 57 kg

DRUGS (12)
  1. REMICADE [Suspect]
     Indication: CROHN^S DISEASE
     Route: 042
     Dates: start: 20100721
  2. REMICADE [Suspect]
     Indication: CROHN^S DISEASE
     Route: 042
     Dates: start: 20121128
  3. METRONIDAZOLE [Concomitant]
     Route: 065
  4. ASA [Concomitant]
     Route: 065
  5. ATENOLOL [Concomitant]
     Route: 065
  6. AZATHIOPRINE [Concomitant]
     Route: 065
  7. HYDROCHLOROTHIAZIDE [Concomitant]
     Route: 065
  8. RANITIDINE [Concomitant]
     Route: 065
  9. ATORVASTATIN [Concomitant]
     Route: 065
  10. RAMIPRIL [Concomitant]
     Route: 065
  11. VENLAFAXINE [Concomitant]
     Route: 065
  12. PREDNISONE [Concomitant]
     Route: 065

REACTIONS (2)
  - Transient ischaemic attack [Recovered/Resolved]
  - Urinary tract infection [Unknown]
